FAERS Safety Report 9277077 (Version 1)
Quarter: 2013Q2

REPORT INFORMATION
  Report Type: Spontaneous
  Country: US (occurrence: US)
  Receive Date: 20130507
  Receipt Date: 20130507
  Transmission Date: 20140414
  Serious: No
  Sender: FDA-Public Use
  Company Number: US-009507513-1305USA001785

PATIENT
  Age: 17 Year
  Sex: Female
  Weight: 60.1 kg

DRUGS (1)
  1. NEXPLANON [Suspect]
     Indication: CONTRACEPTION
     Dosage: 68 MG, ONCE
     Route: 059
     Dates: start: 20130215, end: 20130502

REACTIONS (5)
  - Application site anaesthesia [Recovering/Resolving]
  - Implant site paraesthesia [Recovering/Resolving]
  - Vomiting [Recovering/Resolving]
  - Implant site pain [Recovering/Resolving]
  - Menstruation irregular [Recovering/Resolving]
